FAERS Safety Report 6993390-7 (Version None)
Quarter: 2010Q3

REPORT INFORMATION
  Report Type: 
  Country: None (occurrence: None)
  Receive Date: 20100916
  Receipt Date: 20100916
  Transmission Date: 20110219
  Serious: Yes (Life-Threatening)
  Sender: FDA-Public Use
  Company Number: None

PATIENT
  Age: 25 Year
  Sex: Female
  Weight: 72 kg

DRUGS (4)
  1. METHYLENE BLUE [Suspect]
     Indication: SURGERY
     Dosage: 4 ML OF 2 ML DYE IN 10 ML NS SUBDERMAL
     Route: 059
     Dates: start: 20090817, end: 20090817
  2. XANAX [Concomitant]
  3. MULTIVITAMIN QD [Concomitant]
  4. CLACIUM + VITAMIN D [Concomitant]

REACTIONS (2)
  - ANAPHYLACTIC REACTION [None]
  - PULMONARY OEDEMA [None]
